FAERS Safety Report 15046131 (Version 4)
Quarter: 2024Q3

REPORT INFORMATION
  Report Type: Report from Study
  Country: FR (occurrence: FR)
  Receive Date: 20180621
  Receipt Date: 20240814
  Transmission Date: 20241017
  Serious: Yes (Death, Hospitalization, Other)
  Sender: MYLAN
  Company Number: FR-TAKEDA-2017MPI010667

PATIENT
  Age: 62 Year
  Sex: Male
  Weight: 65 kg

DRUGS (12)
  1. GEMCITABINE [Suspect]
     Active Substance: GEMCITABINE
     Indication: Peripheral T-cell lymphoma unspecified
     Dosage: 1500 MILLIGRAM
     Route: 042
     Dates: start: 20170629, end: 20170707
  2. ADCETRIS [Suspect]
     Active Substance: BRENTUXIMAB VEDOTIN
     Indication: Peripheral T-cell lymphoma unspecified
     Dosage: 80 MG, CYCLE ONE
     Route: 065
     Dates: start: 20170214, end: 20170331
  3. ADCETRIS [Suspect]
     Active Substance: BRENTUXIMAB VEDOTIN
     Dosage: 75 MG, SECOND CYCLE
     Route: 065
     Dates: start: 20170307
  4. ADCETRIS [Suspect]
     Active Substance: BRENTUXIMAB VEDOTIN
     Dosage: 73 MG, THIRD CYCLE
     Route: 065
     Dates: start: 20170331
  5. NAVELBINE [Suspect]
     Active Substance: VINORELBINE TARTRATE
     Indication: Peripheral T-cell lymphoma unspecified
     Dosage: 45 MG, UNK
     Route: 042
     Dates: start: 20170629, end: 20170707
  6. CISPLATIN [Concomitant]
     Active Substance: CISPLATIN
     Indication: Peripheral T-cell lymphoma unspecified
     Dosage: UNK
     Route: 065
     Dates: start: 20170523
  7. DEXAMETHASONE [Concomitant]
     Active Substance: DEXAMETHASONE
     Indication: Peripheral T-cell lymphoma unspecified
     Dosage: UNK
     Route: 065
     Dates: start: 20170523
  8. ICE [Concomitant]
     Active Substance: MENTHOL
     Indication: Peripheral T-cell lymphoma unspecified
     Dosage: UNK
     Route: 065
  9. CYTARABINE [Concomitant]
     Active Substance: CYTARABINE
     Indication: Peripheral T-cell lymphoma unspecified
     Dosage: UNK
     Route: 065
     Dates: start: 20170523
  10. ETOPOSIDE [Concomitant]
     Active Substance: ETOPOSIDE
     Indication: Peripheral T-cell lymphoma unspecified
     Dosage: UNK, THREE CYCLES
     Route: 065
  11. CARBOPLATIN [Concomitant]
     Active Substance: CARBOPLATIN
     Indication: Peripheral T-cell lymphoma unspecified
     Dosage: UNK, THREE CYCLES
     Route: 065
  12. IFOSFAMIDE [Concomitant]
     Active Substance: IFOSFAMIDE
     Indication: Peripheral T-cell lymphoma unspecified
     Dosage: UNK, THREE CYCLES
     Route: 065

REACTIONS (9)
  - General physical condition abnormal [Fatal]
  - Altered state of consciousness [Fatal]
  - Hypotension [Fatal]
  - Sepsis [Fatal]
  - Bone marrow failure [Fatal]
  - Neoplasm progression [Fatal]
  - Vascular device infection [Unknown]
  - Weight decreased [Unknown]
  - Off label use [Unknown]

NARRATIVE: CASE EVENT DATE: 20170101
